FAERS Safety Report 6657806-8 (Version None)
Quarter: 2010Q1

REPORT INFORMATION
  Report Type: 
  Country: None (occurrence: None)
  Receive Date: 20100330
  Receipt Date: 20100326
  Transmission Date: 20100710
  Serious: Yes (Hospitalization)
  Sender: FDA-Public Use
  Company Number: HU-ROCHE-663127

PATIENT
  Sex: Female
  Weight: 61 kg

DRUGS (2)
  1. PEG-INTERFERON ALFA 2A (RO 25-8310) [Suspect]
     Dosage: LAST DOSE PRIOR TO SAE: 06 OCTOBER 2009, ROUTE: SYRINGE.
     Route: 050
     Dates: start: 20090120
  2. RIBAVIRIN [Suspect]
     Dosage: LAST DOSE PRIOR TO SAE: 07 OCTOBER 2009.
     Route: 048
     Dates: start: 20090120

REACTIONS (2)
  - BREAST CANCER [None]
  - BREAST CANCER RECURRENT [None]
